FAERS Safety Report 8516719-7 (Version None)
Quarter: 2012Q2

REPORT INFORMATION
  Report Type: 
  Country: None (occurrence: None)
  Receive Date: 20120406
  Receipt Date: 20110128
  Transmission Date: 20120825
  Serious: Yes (Other)
  Sender: FDA-Public Use
  Company Number: PHHY2010US86451

PATIENT
  Age: 82 Year
  Sex: Female

DRUGS (12)
  1. BISMUTH SUBSALICYLATE [Concomitant]
  2. MAGNESIUM SULFATE [Concomitant]
  3. CALCIUM [Concomitant]
  4. FOLIC ACID [Concomitant]
  5. POTASSIUM CHLORIDE [Concomitant]
  6. TASIGNA [Suspect]
     Indication: CHRONIC MYELOID LEUKAEMIA
     Dosage: 400 MG, DAILY, ORAL
     Route: 048
     Dates: start: 20101119
  7. LEVOXYL [Concomitant]
  8. MULTIVITAMINS (ASCORBIC ACID, ERGOCALCIFEROL, FOLIC ACID, NICOTINAMIDE [Concomitant]
  9. CHLORPHENIRAMINE MALEATE [Concomitant]
  10. NORVASC [Concomitant]
  11. ACETAMINOPHEN [Concomitant]
  12. LASIX [Concomitant]

REACTIONS (7)
  - HYPOMAGNESAEMIA [None]
  - LIPASE INCREASED [None]
  - ELECTROCARDIOGRAM QT PROLONGED [None]
  - PYREXIA [None]
  - ABDOMINAL DISCOMFORT [None]
  - URINARY TRACT INFECTION [None]
  - NASOPHARYNGITIS [None]
